FAERS Safety Report 19971869 (Version 2)
Quarter: 2021Q4

REPORT INFORMATION
  Report Type: Spontaneous
  Country: GB (occurrence: GB)
  Receive Date: 20211019
  Receipt Date: 20211025
  Transmission Date: 20220303
  Serious: Yes (Other)
  Sender: FDA-Public Use
  Company Number: None

PATIENT
  Age: 73 Year
  Sex: Female

DRUGS (5)
  1. TERBINAFINE [Suspect]
     Active Substance: TERBINAFINE
     Indication: Onychomycosis
     Dosage: UNK
     Route: 048
     Dates: start: 202107, end: 202109
  2. ATORVASTATIN CALCIUM [Concomitant]
     Active Substance: ATORVASTATIN CALCIUM
     Indication: Ill-defined disorder
     Dosage: UNK
  3. BISOPROLOL FUMARATE [Concomitant]
     Active Substance: BISOPROLOL FUMARATE
     Indication: Ill-defined disorder
     Dosage: UNK
  4. DIGOXIN [Concomitant]
     Active Substance: DIGOXIN
     Indication: Ill-defined disorder
     Dosage: UNK
  5. EDOXABAN TOSYLATE [Concomitant]
     Active Substance: EDOXABAN TOSYLATE
     Indication: Ill-defined disorder
     Dosage: UNK

REACTIONS (1)
  - Lupus-like syndrome [Unknown]

NARRATIVE: CASE EVENT DATE: 20210801
